FAERS Safety Report 23521880 (Version 1)
Quarter: 2024Q1

REPORT INFORMATION
  Report Type: Spontaneous
  Country: US (occurrence: None)
  Receive Date: 20240213
  Receipt Date: 20240213
  Transmission Date: 20240410
  Serious: Yes (Death)
  Sender: FDA-Public Use
  Company Number: None

PATIENT
  Age: 74 Year
  Sex: Male

DRUGS (1)
  1. LENALIDOMIDE [Suspect]
     Active Substance: LENALIDOMIDE
     Indication: Plasma cell myeloma
     Dosage: 5MG QD ORAL?
     Route: 048
     Dates: start: 20180305, end: 20231117

REACTIONS (4)
  - Urinary tract infection [None]
  - Syncope [None]
  - Abdominal pain [None]
  - Hospice care [None]

NARRATIVE: CASE EVENT DATE: 20231126
